FAERS Safety Report 20199391 (Version 6)
Quarter: 2022Q1

REPORT INFORMATION
  Report Type: Report from Study
  Country: BR (occurrence: BR)
  Receive Date: 20211217
  Receipt Date: 20220217
  Transmission Date: 20220423
  Serious: Yes (Hospitalization)
  Sender: FDA-Public Use
  Company Number: BR-BRISTOL-MYERS SQUIBB COMPANY-BMS-2021-136259

PATIENT
  Age: 61 Year
  Sex: Male
  Weight: 91 kg

DRUGS (7)
  1. NIVOLUMAB [Suspect]
     Active Substance: NIVOLUMAB
     Indication: Hepatocellular carcinoma
     Dosage: 91 MILLIGRAM
     Route: 065
     Dates: start: 20210915, end: 20211117
  2. IPILIMUMAB [Suspect]
     Active Substance: IPILIMUMAB
     Indication: Hepatocellular carcinoma
     Dosage: 273 MILLIGRAM
     Route: 065
     Dates: start: 20210915, end: 20211117
  3. LOSARTAN [Concomitant]
     Active Substance: LOSARTAN
     Indication: Product used for unknown indication
     Dosage: 50 MILLIGRAM
     Route: 048
     Dates: start: 2020
  4. BROMOPRIDE [Concomitant]
     Active Substance: BROMOPRIDE
     Indication: Adverse event
     Dosage: 10 MILLIGRAM
     Route: 042
     Dates: start: 20211209, end: 20211209
  5. ONDANSETRON [Concomitant]
     Active Substance: ONDANSETRON
     Indication: Adverse event
     Dosage: 8 MILLIGRAM
     Route: 042
     Dates: start: 20211209, end: 20211209
  6. ONDANSETRON [Concomitant]
     Active Substance: ONDANSETRON
     Dosage: 24 MILLIGRAM
     Route: 048
     Dates: start: 20211201, end: 20211221
  7. INVESTIGATIONAL PRODUCT [Concomitant]
     Active Substance: INVESTIGATIONAL PRODUCT
     Indication: Prophylaxis
     Dosage: UNK
     Route: 030
     Dates: start: 202106

REACTIONS (1)
  - Colitis [Recovered/Resolved]

NARRATIVE: CASE EVENT DATE: 20211212
